FAERS Safety Report 10628926 (Version 1)
Quarter: 2014Q4

REPORT INFORMATION
  Report Type: Spontaneous
  Country: US (occurrence: US)
  Receive Date: 20141205
  Receipt Date: 20141205
  Transmission Date: 20150529
  Serious: No
  Sender: FDA-Public Use
  Company Number: US-BRISTOL-MYERS SQUIBB COMPANY-21559646

PATIENT
  Age: 29 Year
  Sex: Female

DRUGS (3)
  1. LIDOCAINE. [Suspect]
     Active Substance: LIDOCAINE
     Indication: TENOSYNOVITIS STENOSANS
  2. KENALOG-40 [Suspect]
     Active Substance: TRIAMCINOLONE ACETONIDE
     Indication: TENOSYNOVITIS STENOSANS
     Dosage: 40GM=1ML.
     Dates: start: 20140805
  3. NAPROSYN [Concomitant]
     Active Substance: NAPROXEN

REACTIONS (2)
  - Skin atrophy [Recovering/Resolving]
  - Skin depigmentation [Recovering/Resolving]

NARRATIVE: CASE EVENT DATE: 2014
